FAERS Safety Report 9646018 (Version 2)
Quarter: 2013Q4

REPORT INFORMATION
  Report Type: Report from Study
  Country: DE (occurrence: DE)
  Receive Date: 20131025
  Receipt Date: 20131025
  Transmission Date: 20140711
  Serious: Yes (Other)
  Sender: FDA-Public Use
  Company Number: PHHY2013DE024312

PATIENT
  Sex: Female
  Weight: 62 kg

DRUGS (4)
  1. AFINITOR [Suspect]
     Indication: BREAST CANCER METASTATIC
     Dosage: 10 MG, QD
     Route: 048
     Dates: start: 20120912, end: 20120925
  2. AFINITOR [Suspect]
     Dosage: 10 MG, QD
     Route: 048
     Dates: start: 20121003, end: 20130306
  3. EXEMESTANE [Suspect]
     Dosage: 25 MG, QD
     Route: 048
     Dates: start: 20120912, end: 20120925
  4. EXEMESTANE [Suspect]
     Dosage: 25 MG, QD
     Route: 048
     Dates: start: 20121003

REACTIONS (11)
  - Hepatic enzyme increased [Not Recovered/Not Resolved]
  - Gamma-glutamyltransferase increased [Not Recovered/Not Resolved]
  - Ascites [Unknown]
  - Generalised oedema [Unknown]
  - Cholecystitis [Recovered/Resolved]
  - Abdominal pain upper [Recovered/Resolved]
  - Tumour marker increased [Unknown]
  - Pain in extremity [Recovering/Resolving]
  - Oedema peripheral [Not Recovered/Not Resolved]
  - Stomatitis [Recovered/Resolved]
  - Leukopenia [Recovered/Resolved]
